FAERS Safety Report 18599464 (Version 1)
Quarter: 2020Q4

REPORT INFORMATION
  Report Type: Spontaneous
  Country: AU (occurrence: AU)
  Receive Date: 20201210
  Receipt Date: 20201210
  Transmission Date: 20210114
  Serious: Yes (Other)
  Sender: FDA-Public Use
  Company Number: AU-SUN PHARMACEUTICAL INDUSTRIES LTD-2020RR-270765

PATIENT

DRUGS (9)
  1. PROPOFOL. [Suspect]
     Active Substance: PROPOFOL
     Indication: ANAESTHESIA
     Dosage: 200 MILLIGRAM, H
     Route: 064
  2. FENTANYL. [Suspect]
     Active Substance: FENTANYL
     Indication: ANAESTHESIA
     Dosage: 1000 MICROGRAM, UNK
     Route: 064
  3. MIDAZOLAM. [Suspect]
     Active Substance: MIDAZOLAM
     Indication: ANAESTHESIA
     Dosage: 5 MILLIGRAM, UNK
     Route: 064
  4. METARAMINOL [Suspect]
     Active Substance: METARAMINOL
     Indication: ANAESTHESIA
     Dosage: 0.5 MILLIGRAM, UNK (TWO BOLUSES)
     Route: 064
  5. RANITIDINE. [Suspect]
     Active Substance: RANITIDINE
     Indication: RESPIRATORY DISORDER PROPHYLAXIS
     Dosage: 150 MILLIGRAM, UNK
     Route: 064
  6. SUXAMETHONIUM [Suspect]
     Active Substance: SUCCINYLCHOLINE
     Indication: ANAESTHESIA
     Dosage: 150 MILLIGRAM, UNK
     Route: 064
  7. SALBUTAMOL [Suspect]
     Active Substance: ALBUTEROL
     Indication: ASTHMA
     Dosage: UNK
     Route: 064
  8. BUDESONIDE. [Suspect]
     Active Substance: BUDESONIDE
     Indication: ASTHMA
     Dosage: UNK
     Route: 064
  9. ISOFURANE [Suspect]
     Active Substance: ISOFLURANE
     Indication: ANAESTHESIA
     Dosage: ENDTIDAL CONCENTRATION 0.5%
     Route: 064

REACTIONS (2)
  - Foetal exposure during pregnancy [Unknown]
  - Premature baby [Unknown]
